FAERS Safety Report 9552595 (Version 1)
Quarter: 2013Q3

REPORT INFORMATION
  Report Type: Report from Study
  Country: CL (occurrence: CL)
  Receive Date: 20130925
  Receipt Date: 20130925
  Transmission Date: 20140515
  Serious: Yes (Other)
  Sender: FDA-Public Use
  Company Number: CL-ROCHE-1280583

PATIENT
  Age: 50 Year
  Sex: Female
  Weight: 70 kg

DRUGS (3)
  1. XELODA [Suspect]
     Indication: BREAST CANCER
     Dosage: LAST ADMINISTRATION: 14/AUG/2013
     Route: 048
     Dates: start: 20130425, end: 20130902
  2. HERCEPTIN [Suspect]
     Indication: BREAST CANCER
     Route: 042
     Dates: start: 20130425, end: 20130902
  3. LOSARTAN [Concomitant]
     Indication: HYPERTENSION
     Route: 048
     Dates: start: 2011

REACTIONS (3)
  - Metastases to bone [Not Recovered/Not Resolved]
  - Metastases to liver [Not Recovered/Not Resolved]
  - Drug ineffective [Unknown]
